FAERS Safety Report 10932690 (Version 1)
Quarter: 2015Q1

REPORT INFORMATION
  Report Type: Spontaneous
  Country: US (occurrence: None)
  Receive Date: 20150319
  Receipt Date: 20150319
  Transmission Date: 20150721
  Serious: No
  Sender: FDA-Public Use
  Company Number: None

PATIENT
  Age: 49 Year
  Sex: Female
  Weight: 88.45 kg

DRUGS (2)
  1. MIRVASO [Suspect]
     Active Substance: BRIMONIDINE TARTRATE
     Indication: ROSACEA
     Dosage: 33%1 PEA SIZED DROP ONCE A DAY TOPICALLY ON THE FACE
     Route: 061
     Dates: start: 20150309, end: 20150311
  2. ARMOUR THYROID [Concomitant]
     Active Substance: THYROID, PORCINE\THYROID, UNSPECIFIED

REACTIONS (4)
  - Condition aggravated [None]
  - Chemical injury [None]
  - Discomfort [None]
  - Erythema [None]

NARRATIVE: CASE EVENT DATE: 20150311
